FAERS Safety Report 14040293 (Version 1)
Quarter: 2017Q4

REPORT INFORMATION
  Report Type: Spontaneous
  Country: US (occurrence: US)
  Receive Date: 20171004
  Receipt Date: 20171004
  Transmission Date: 20180321
  Serious: Yes (Hospitalization)
  Sender: FDA-Public Use
  Company Number: US-IMPAX LABORATORIES, INC-2017-IPXL-02799

PATIENT
  Age: 65 Year
  Sex: Male

DRUGS (2)
  1. BACLOFEN. [Suspect]
     Active Substance: BACLOFEN
     Indication: PRODUCT USE IN UNAPPROVED INDICATION
     Dosage: UNK
     Route: 065
  2. BACLOFEN. [Suspect]
     Active Substance: BACLOFEN
     Indication: PROCEDURAL PAIN
     Dosage: 10 MG, 3 /DAY
     Route: 065

REACTIONS (8)
  - Toxicity to various agents [Recovered/Resolved]
  - Somnolence [Recovered/Resolved]
  - Product use in unapproved indication [Unknown]
  - Lethargy [Recovered/Resolved]
  - Hypotonia [Recovered/Resolved]
  - Drug-disease interaction [Recovered/Resolved]
  - Fall [Recovered/Resolved]
  - Unresponsive to stimuli [Recovered/Resolved]
